FAERS Safety Report 16598239 (Version 1)
Quarter: 2019Q3

REPORT INFORMATION
  Report Type: Spontaneous
  Country: PT (occurrence: PT)
  Receive Date: 20190719
  Receipt Date: 20190719
  Transmission Date: 20191004
  Serious: Yes (Hospitalization, Other)
  Sender: FDA-Public Use
  Company Number: PT-PFIZER INC-2019304530

PATIENT
  Age: 7 Year
  Sex: Male

DRUGS (4)
  1. AMOXICILLIN CLAVULANIC ACID [Suspect]
     Active Substance: AMOXICILLIN\CLAVULANIC ACID
     Indication: ANTIBIOTIC THERAPY
     Dosage: UNK
     Route: 042
  2. CLINDAMYCIN PHOSPHATE. [Suspect]
     Active Substance: CLINDAMYCIN PHOSPHATE
     Indication: ANTIBIOTIC THERAPY
     Dosage: UNK
     Route: 042
  3. FLUCLOXACILLIN [Suspect]
     Active Substance: FLUCLOXACILLIN
     Indication: CELLULITIS
     Dosage: UNK
     Route: 048
  4. BENZYLPENICILLIN [Suspect]
     Active Substance: PENICILLIN G
     Indication: TONSILLITIS
     Dosage: UNK
     Route: 030

REACTIONS (4)
  - Osteomyelitis salmonella [Recovering/Resolving]
  - Resorption bone increased [Recovering/Resolving]
  - Arthritis bacterial [Recovering/Resolving]
  - Bacteraemia [Recovering/Resolving]
